FAERS Safety Report 14712561 (Version 1)
Quarter: 2018Q2

REPORT INFORMATION
  Report Type: Other
  Country: US (occurrence: US)
  Receive Date: 20180404
  Receipt Date: 20180404
  Transmission Date: 20180711
  Serious: Yes (Other)
  Sender: FDA-Public Use
  Company Number: US-OREXIGEN THERAPEUTICS, INC.-2045062

PATIENT
  Sex: Female
  Weight: 99.77 kg

DRUGS (7)
  1. SYNTHROID [Concomitant]
     Active Substance: LEVOTHYROXINE SODIUM
     Route: 048
  2. CONTRAVE [Suspect]
     Active Substance: BUPROPION HYDROCHLORIDE\NALTREXONE HYDROCHLORIDE
     Indication: WEIGHT CONTROL
     Route: 065
     Dates: start: 201801
  3. CONTRAVE [Suspect]
     Active Substance: BUPROPION HYDROCHLORIDE\NALTREXONE HYDROCHLORIDE
     Route: 048
     Dates: start: 20180125, end: 20180128
  4. MULTIVITAMIN                       /00097801/ [Concomitant]
     Active Substance: VITAMINS
     Route: 048
  5. ASPIRIN. [Concomitant]
     Active Substance: ASPIRIN
     Route: 048
  6. CONTRAVE [Suspect]
     Active Substance: BUPROPION HYDROCHLORIDE\NALTREXONE HYDROCHLORIDE
     Route: 048
     Dates: start: 20180131, end: 20180131
  7. METOPROLOL. [Concomitant]
     Active Substance: METOPROLOL
     Route: 048

REACTIONS (2)
  - Eyelid oedema [Unknown]
  - Swelling face [Unknown]
